FAERS Safety Report 5196320-6 (Version None)
Quarter: 2006Q4

REPORT INFORMATION
  Report Type: 
  Country: None (occurrence: None)
  Receive Date: 20061222
  Receipt Date: 20061208
  Transmission Date: 20070319
  Serious: Yes (Hospitalization, Other)
  Sender: FDA-Public Use
  Company Number: 2006150762

PATIENT
  Age: 74 Year
  Sex: Male

DRUGS (9)
  1. HALCION [Suspect]
     Indication: INSOMNIA
     Dosage: 0.25 MG, ORAL
     Route: 048
     Dates: start: 20060929, end: 20061103
  2. OLMETEC (OLMESARTAN) [Suspect]
     Indication: HYPERTENSION
     Dosage: 20 MG, ORAL
     Route: 048
     Dates: start: 20060606, end: 20061103
  3. PRAVASTATIN [Suspect]
     Indication: HYPERLIPIDAEMIA
     Dosage: 10 MG, ORAL
     Route: 048
     Dates: start: 20060623, end: 20061103
  4. BUFFERIN /JPN/ (ACETYLSALICYLIC ACID, ALUMINIUM GLYCINATE) [Suspect]
     Indication: ARTERIOSCLEROSIS
     Dosage: 81 MG, ORAL
     Route: 048
     Dates: start: 20061101, end: 20061103
  5. EURODIN (ESTAZOLAM) [Suspect]
     Indication: INSOMNIA
     Dosage: 1 MG, ORAL
     Route: 048
     Dates: start: 20060929, end: 20061103
  6. OLOPATADINE HYDROCHLORIDE [Concomitant]
  7. REBAMIPIDE (REBAMIPIDE) [Concomitant]
  8. NAFTOPIDIL (NAFTOPIDIL) [Concomitant]
  9. LACTOBACILLUS BIFIDUS, LYOPHILIZED (LACTOBACILLUS BIFIDUS, LYOPHILIZED [Concomitant]

REACTIONS (5)
  - ARTERIOSCLEROSIS [None]
  - CAROTID ARTERY DISEASE [None]
  - HYPERLIPIDAEMIA [None]
  - INSOMNIA [None]
  - RHABDOMYOLYSIS [None]
